FAERS Safety Report 12723254 (Version 1)
Quarter: 2016Q3

REPORT INFORMATION
  Report Type: Spontaneous
  Country: NO (occurrence: NO)
  Receive Date: 20160908
  Receipt Date: 20160908
  Transmission Date: 20161109
  Serious: Yes (Other)
  Sender: FDA-Public Use
  Company Number: NO-BAUSCH-BL-2016-021080

PATIENT
  Age: 11 Year
  Sex: Female

DRUGS (1)
  1. PREDNISOLON [Suspect]
     Active Substance: PREDNISOLONE
     Indication: PRODUCT USED FOR UNKNOWN INDICATION
     Route: 065

REACTIONS (11)
  - Peroneal nerve palsy [Recovered/Resolved]
  - Paraesthesia [Recovered/Resolved]
  - Musculoskeletal discomfort [Recovering/Resolving]
  - Muscle atrophy [Recovered/Resolved]
  - Muscular weakness [Not Recovered/Not Resolved]
  - Myopathy [Recovered/Resolved]
  - Polyneuropathy [Recovered/Resolved]
  - Bone infarction [Not Recovered/Not Resolved]
  - Oedema peripheral [Recovered/Resolved]
  - Hyperaesthesia [Recovered/Resolved]
  - Pain in extremity [Unknown]
